FAERS Safety Report 20777760 (Version 1)
Quarter: 2022Q2

REPORT INFORMATION
  Report Type: Spontaneous
  Country: US (occurrence: US)
  Receive Date: 20220503
  Receipt Date: 20220503
  Transmission Date: 20220721
  Serious: Yes (Hospitalization)
  Sender: FDA-Public Use
  Company Number: US-SA-SAC20220502001163

PATIENT
  Sex: Female

DRUGS (2)
  1. DUPIXENT [Suspect]
     Active Substance: DUPILUMAB
     Indication: Asthma
     Dosage: 300 MG, QOW
     Route: 058
     Dates: start: 20210730
  2. THYROGEN [Concomitant]
     Active Substance: THYROTROPIN ALFA
     Dosage: UNK

REACTIONS (3)
  - Abdominal pain [Unknown]
  - Colitis [Unknown]
  - Product dose omission issue [Unknown]
